FAERS Safety Report 23763683 (Version 2)
Quarter: 2024Q2

REPORT INFORMATION
  Report Type: Spontaneous
  Country: US (occurrence: US)
  Receive Date: 20240419
  Receipt Date: 20240508
  Transmission Date: 20240716
  Serious: No
  Sender: FDA-Public Use
  Company Number: US-Calliditas-2024CAL00593

PATIENT
  Age: 55 Year
  Sex: Male
  Weight: 99.8 kg

DRUGS (1)
  1. TARPEYO [Suspect]
     Active Substance: BUDESONIDE
     Indication: IgA nephropathy
     Dosage: 16MG (4MG CAPSULES) ONCE DAILY
     Route: 048
     Dates: start: 20240313

REACTIONS (2)
  - Chest discomfort [Recovered/Resolved]
  - Nocturia [Unknown]

NARRATIVE: CASE EVENT DATE: 20240313
